FAERS Safety Report 21211008 (Version 1)
Quarter: 2022Q3

REPORT INFORMATION
  Report Type: Spontaneous
  Country: US (occurrence: None)
  Receive Date: 20220812
  Receipt Date: 20220812
  Transmission Date: 20221027
  Serious: Yes (Hospitalization)
  Sender: FDA-Public Use
  Company Number: None

PATIENT
  Age: 23 Year
  Sex: Male
  Weight: 71 kg

DRUGS (3)
  1. CISPLATIN [Suspect]
     Active Substance: CISPLATIN
     Dates: end: 20220731
  2. IFOSFAMIDE [Suspect]
     Active Substance: IFOSFAMIDE
     Dates: end: 20220731
  3. TAXOL [Suspect]
     Active Substance: PACLITAXEL
     Dates: end: 20220727

REACTIONS (2)
  - Febrile neutropenia [None]
  - Acute kidney injury [None]

NARRATIVE: CASE EVENT DATE: 20220804
